FAERS Safety Report 22155000 (Version 1)
Quarter: 2023Q1

REPORT INFORMATION
  Report Type: Other
  Country: DE (occurrence: None)
  Receive Date: 20230330
  Receipt Date: 20230330
  Transmission Date: 20230418
  Serious: Yes (Hospitalization)
  Sender: FDA-Public Use
  Company Number: DE-ROCHE-3317880

PATIENT
  Age: 45 Year
  Sex: Female
  Weight: 31.5 kg

DRUGS (4)
  1. RISDIPLAM [Suspect]
     Active Substance: RISDIPLAM
     Indication: Spinal muscular atrophy
     Route: 048
     Dates: start: 20210120, end: 20230110
  2. METAMIZOLE SODIUM [Concomitant]
     Active Substance: METAMIZOLE SODIUM
     Dates: start: 2010
  3. DRONABINOL [Concomitant]
     Active Substance: DRONABINOL
     Dates: start: 2019
  4. PREGABALIN [Concomitant]
     Active Substance: PREGABALIN
     Dates: start: 2008

REACTIONS (1)
  - Gastroenteritis [Recovered/Resolved]

NARRATIVE: CASE EVENT DATE: 20220717
